FAERS Safety Report 23976555 (Version 1)
Quarter: 2024Q2

REPORT INFORMATION
  Report Type: Spontaneous
  Country: IT (occurrence: IT)
  Receive Date: 20240614
  Receipt Date: 20240614
  Transmission Date: 20240716
  Serious: Yes (Other)
  Sender: FDA-Public Use
  Company Number: IT-SUN PHARMACEUTICAL INDUSTRIES LTD-2024R1-450870

PATIENT
  Sex: Female

DRUGS (3)
  1. AMIODARONE [Suspect]
     Active Substance: AMIODARONE
     Indication: Arrhythmia prophylaxis
     Dosage: UNK
     Route: 065
  2. PROPAFENONE [Suspect]
     Active Substance: PROPAFENONE
     Indication: Arrhythmia prophylaxis
     Dosage: UNK
     Route: 065
  3. DIGITALIS [Suspect]
     Active Substance: DIGITALIS
     Indication: Arrhythmia prophylaxis
     Dosage: UNK
     Route: 065

REACTIONS (2)
  - Exposure during pregnancy [Unknown]
  - Premature delivery [Unknown]
